FAERS Safety Report 6576940-4 (Version None)
Quarter: 2010Q1

REPORT INFORMATION
  Report Type: 
  Country: None (occurrence: None)
  Receive Date: 20100210
  Receipt Date: 20100202
  Transmission Date: 20100710
  Serious: Yes (Life-Threatening, Hospitalization)
  Sender: FDA-Public Use
  Company Number: FR-AMGEN-US330574

PATIENT
  Sex: Male

DRUGS (8)
  1. ENBREL [Suspect]
     Indication: PSORIASIS
     Route: 058
     Dates: start: 20070920, end: 20080811
  2. REMICADE [Suspect]
     Dosage: 5 MG/KG; FREQUENCY UNSPECIFIED, (INCLUDING 2 INJECTIONS IN AUG-2008)
     Route: 042
     Dates: start: 20080814, end: 20080919
  3. ZANIDIP [Concomitant]
     Route: 048
  4. DAFALGAN [Concomitant]
     Dosage: 500 MG STRENGTH; ON REQUEST
     Route: 048
  5. LANTUS [Concomitant]
     Dosage: 22 IU/ML 1 TIME DAILY
     Route: 065
  6. NOVORAPID [Concomitant]
     Dosage: UNKNOWN
     Route: 065
  7. BECILAN [Concomitant]
     Route: 065
  8. COZAAR [Concomitant]
     Route: 048

REACTIONS (12)
  - ABDOMINAL PAIN [None]
  - ALVEOLITIS [None]
  - ANTIPHOSPHOLIPID SYNDROME [None]
  - ARTERIOVENOUS FISTULA THROMBOSIS [None]
  - CANDIDIASIS [None]
  - CIRCULATING ANTICOAGULANT POSITIVE [None]
  - GENERAL PHYSICAL HEALTH DETERIORATION [None]
  - HYPOXIA [None]
  - NAUSEA [None]
  - PERTUSSIS [None]
  - REFRACTORY ANAEMIA [None]
  - VOMITING [None]
